FAERS Safety Report 19205254 (Version 1)
Quarter: 2021Q2

REPORT INFORMATION
  Report Type: Spontaneous
  Country: US (occurrence: US)
  Receive Date: 20210501
  Receipt Date: 20210501
  Transmission Date: 20210717
  Serious: Yes (Disabling, Other)
  Sender: FDA-Public Use
  Company Number: None

PATIENT
  Age: 60 Year
  Sex: Female
  Weight: 56.7 kg

DRUGS (14)
  1. GABAPENTIN. [Concomitant]
     Active Substance: GABAPENTIN
  2. PROBIOTIC [Concomitant]
     Active Substance: PROBIOTICS NOS
  3. TRAMADOL. [Concomitant]
     Active Substance: TRAMADOL
  4. AMPHETAMINE [Concomitant]
     Active Substance: AMPHETAMINE
  5. CALCIUM [Concomitant]
     Active Substance: CALCIUM
  6. OCREVUS [Suspect]
     Active Substance: OCRELIZUMAB
     Indication: MULTIPLE SCLEROSIS
     Route: 042
     Dates: start: 20201208
  7. MAGNESIUM [Concomitant]
     Active Substance: MAGNESIUM
  8. BACLOFEN. [Concomitant]
     Active Substance: BACLOFEN
  9. TOPAMAX [Concomitant]
     Active Substance: TOPIRAMATE
  10. BIOTIN [Concomitant]
     Active Substance: BIOTIN
  11. COENZYME Q10 [Concomitant]
     Active Substance: DIETARY SUPPLEMENT\UBIDECARENONE
  12. VITAMIN D3 [Concomitant]
     Active Substance: CHOLECALCIFEROL
  13. VITAMIN B12 [Concomitant]
     Active Substance: CYANOCOBALAMIN
  14. CRANBERRY. [Concomitant]
     Active Substance: CRANBERRY

REACTIONS (6)
  - Migraine [None]
  - Burning sensation [None]
  - Vibratory sense increased [None]
  - Multiple sclerosis relapse [None]
  - Muscular weakness [None]
  - Fatigue [None]

NARRATIVE: CASE EVENT DATE: 20210401
